FAERS Safety Report 16383372 (Version 1)
Quarter: 2019Q2

REPORT INFORMATION
  Report Type: Spontaneous
  Country: US (occurrence: US)
  Receive Date: 20190516
  Receipt Date: 20190516
  Transmission Date: 20190711
  Serious: Yes (Hospitalization)
  Sender: FDA-Public Use
  Company Number: None

PATIENT
  Sex: Female

DRUGS (13)
  1. TASIGNA [Suspect]
     Active Substance: NILOTINIB
     Indication: CHRONIC MYELOID LEUKAEMIA
     Route: 048
     Dates: start: 20170815
  2. ATROVASTATIN [Concomitant]
     Active Substance: ATORVASTATIN CALCIUM
  3. HYDROCO/APAP [Concomitant]
     Active Substance: ACETAMINOPHEN\HYDROCODONE
  4. CLOBETASOL [Concomitant]
     Active Substance: CLOBETASOL
  5. AMLOD/BENAZP [Concomitant]
  6. RANITIDINE. [Concomitant]
     Active Substance: RANITIDINE
  7. XARELTO [Concomitant]
     Active Substance: RIVAROXABAN
  8. CLOPIDOGREL [Concomitant]
     Active Substance: CLOPIDOGREL BISULFATE
  9. BUT/APAP/CAF [Concomitant]
  10. BETAMETH DIP [Concomitant]
  11. CEPHALEXIN. [Concomitant]
     Active Substance: CEPHALEXIN
  12. LORAZEPAM. [Concomitant]
     Active Substance: LORAZEPAM
  13. FLUOCIN [Concomitant]

REACTIONS (2)
  - Therapy cessation [None]
  - Surgery [None]
